FAERS Safety Report 19637988 (Version 2)
Quarter: 2021Q3

REPORT INFORMATION
  Report Type: Report from Study
  Country: DE (occurrence: DE)
  Receive Date: 20210729
  Receipt Date: 20210806
  Transmission Date: 20211014
  Serious: Yes (Death, Life-Threatening, Other)
  Sender: FDA-Public Use
  Company Number: DE-GILEAD-2021-0542093

PATIENT
  Sex: Female
  Weight: 90 kg

DRUGS (5)
  1. LEVOTHYROXINE. [Concomitant]
     Active Substance: LEVOTHYROXINE
  2. NIFEDIPINE. [Concomitant]
     Active Substance: NIFEDIPINE
  3. SACITUZUMAB GOVITECAN. [Suspect]
     Active Substance: SACITUZUMAB GOVITECAN
     Indication: TRIPLE NEGATIVE BREAST CANCER
     Dosage: 10 MG/KG (900 MG)
     Route: 042
     Dates: start: 20210719, end: 20210726
  4. SOTALOL. [Concomitant]
     Active Substance: SOTALOL
  5. PANTOPRAZOLE [Concomitant]
     Active Substance: PANTOPRAZOLE

REACTIONS (11)
  - Asphyxia [Fatal]
  - General physical health deterioration [Fatal]
  - Pneumonia [Unknown]
  - Ileus [Fatal]
  - Pleural effusion [Not Recovered/Not Resolved]
  - Neutropenia [Unknown]
  - Soft tissue infection [Not Recovered/Not Resolved]
  - Aspiration [Fatal]
  - Mucosal inflammation [Fatal]
  - Vomiting [Fatal]
  - Malaise [Fatal]

NARRATIVE: CASE EVENT DATE: 20210726
